FAERS Safety Report 5114464-1 (Version None)
Quarter: 2006Q3

REPORT INFORMATION
  Report Type: 
  Country: None (occurrence: None)
  Receive Date: 20060802
  Receipt Date: 20060509
  Transmission Date: 20061208
  Serious: No
  Sender: FDA-Public Use
  Company Number: 200612825US

PATIENT
  Age: 29 Year
  Sex: Female
  Weight: 69 kg

DRUGS (7)
  1. KETEK [Suspect]
     Indication: SINUSITIS
     Dosage: 400 MG QD PO
     Route: 048
     Dates: start: 20060316, end: 20060320
  2. LEVOTHYROXINE SODIUM (SYNTHOID) [Concomitant]
  3. ETHINYL ESTRADIOL TAB [Concomitant]
  4. NORGESTIMATE(ORTHO TRI-CYCLEN) [Concomitant]
  5. MULTI-VITAMIN [Concomitant]
  6. PSEUDOEPHEDRINE HYDROCHLORIDE [Concomitant]
  7. FEXOFENADINE (ALLEGRA-D) [Concomitant]

REACTIONS (1)
  - VISION BLURRED [None]
